FAERS Safety Report 14157638 (Version 2)
Quarter: 2020Q2

REPORT INFORMATION
  Report Type: Spontaneous
  Country: US (occurrence: US)
  Receive Date: 20171103
  Receipt Date: 20200627
  Transmission Date: 20200713
  Serious: Yes (Hospitalization, Other)
  Sender: FDA-Public Use
  Company Number: US-AMGEN-USASP2017162915

PATIENT
  Age: 69 Year
  Sex: Male

DRUGS (2)
  1. INOTUZUMAB [Concomitant]
     Active Substance: INOTUZUMAB OZOGAMICIN
     Indication: ACUTE LYMPHOCYTIC LEUKAEMIA
     Dosage: UNK
  2. BLINCYTO [Suspect]
     Active Substance: BLINATUMOMAB
     Indication: B PRECURSOR TYPE ACUTE LEUKAEMIA
     Dosage: UNK
     Route: 065

REACTIONS (7)
  - Therapy non-responder [Unknown]
  - Gait disturbance [Not Recovered/Not Resolved]
  - Tremor [Unknown]
  - Balance disorder [Not Recovered/Not Resolved]
  - Precursor B-lymphoblastic lymphoma recurrent [Not Recovered/Not Resolved]
  - Nervous system disorder [Unknown]
  - Coordination abnormal [Not Recovered/Not Resolved]
